FAERS Safety Report 7375066-X (Version None)
Quarter: 2011Q1

REPORT INFORMATION
  Report Type: 
  Country: None (occurrence: None)
  Receive Date: 20110325
  Receipt Date: 20110314
  Transmission Date: 20110831
  Serious: Yes (Hospitalization)
  Sender: FDA-Public Use
  Company Number: PHFR2011GB01929

PATIENT
  Sex: Male

DRUGS (1)
  1. CLOZARIL [Suspect]
     Indication: SCHIZOPHRENIA
     Dosage: UNK
     Route: 048
     Dates: start: 20110223, end: 20110312

REACTIONS (6)
  - HYPERSENSITIVITY [None]
  - DISORIENTATION [None]
  - INFECTION [None]
  - PYREXIA [None]
  - SYNCOPE [None]
  - HEART RATE INCREASED [None]
